FAERS Safety Report 15297800 (Version 1)
Quarter: 2018Q3

REPORT INFORMATION
  Report Type: Spontaneous
  Country: US (occurrence: US)
  Receive Date: 20180820
  Receipt Date: 20180820
  Transmission Date: 20181010
  Serious: Yes (Other)
  Sender: FDA-Public Use
  Company Number: US-PERNIX THERAPEUTICS-US-2018PER001709

PATIENT
  Age: 84 Year
  Sex: Male

DRUGS (3)
  1. SUMATRIPTAN SUCCINATE, NAPROXEN SODIUM [Suspect]
     Active Substance: NAPROXEN SODIUM\SUMATRIPTAN SUCCINATE
     Indication: LUMBAR RADICULOPATHY
  2. FLECAINIDE [Concomitant]
     Active Substance: FLECAINIDE
     Indication: ATRIAL FIBRILLATION
     Dosage: UNK
  3. SUMATRIPTAN SUCCINATE, NAPROXEN SODIUM [Suspect]
     Active Substance: NAPROXEN SODIUM\SUMATRIPTAN SUCCINATE
     Indication: SPINAL COLUMN STENOSIS
     Dosage: 220 MG, TID

REACTIONS (1)
  - Eosinophilic pneumonia [Recovering/Resolving]
